FAERS Safety Report 8237258-7 (Version None)
Quarter: 2012Q1

REPORT INFORMATION
  Report Type: 
  Country: None (occurrence: None)
  Receive Date: 20120327
  Receipt Date: 20120327
  Transmission Date: 20120608
  Serious: Yes (Hospitalization)
  Sender: FDA-Public Use
  Company Number: None

PATIENT
  Age: 20 Year
  Sex: Male
  Weight: 74.842 kg

DRUGS (1)
  1. ROBINUL [Suspect]
     Indication: PREOPERATIVE CARE
     Dosage: 0.2 MG
     Route: 042

REACTIONS (8)
  - DEHYDRATION [None]
  - CARDIAC DISORDER [None]
  - HEART RATE IRREGULAR [None]
  - ARRHYTHMIA [None]
  - CHEST PAIN [None]
  - COELIAC DISEASE [None]
  - CONDITION AGGRAVATED [None]
  - CONTRAINDICATION TO MEDICAL TREATMENT [None]
